FAERS Safety Report 22050937 (Version 1)
Quarter: 2023Q1

REPORT INFORMATION
  Report Type: Report from Study
  Country: US (occurrence: US)
  Receive Date: 20230301
  Receipt Date: 20230301
  Transmission Date: 20230417
  Serious: Yes (Other)
  Sender: FDA-Public Use
  Company Number: US-ALLERGAN-2305550US

PATIENT
  Sex: Female

DRUGS (1)
  1. CYCLOSPORINE [Suspect]
     Active Substance: CYCLOSPORINE
     Indication: Product used for unknown indication
     Dosage: 2 GTT, QD
     Route: 047
     Dates: start: 20210615

REACTIONS (3)
  - Eye operation [Unknown]
  - Mass [Unknown]
  - Product use issue [Unknown]

NARRATIVE: CASE EVENT DATE: 20230221
